FAERS Safety Report 4471986-4 (Version None)
Quarter: 2004Q4

REPORT INFORMATION
  Report Type: 
  Country: None (occurrence: None)
  Receive Date: 20041007
  Receipt Date: 20040924
  Transmission Date: 20050328
  Serious: Yes (Hospitalization, Other)
  Sender: FDA-Public Use
  Company Number: 2004051456

PATIENT
  Age: 60 Year
  Sex: Male

DRUGS (3)
  1. NORVASC [Suspect]
     Indication: HYPERTENSION
     Dosage: 5 MG (5 MG, 1 IN 1 D), ORAL
     Route: 048
     Dates: start: 20040724, end: 20040728
  2. ALLOPURINOL [Concomitant]
  3. MANIDIPINE HYDROCHLORIDE (MANIDIPINE HYDROCHLORIDE) [Concomitant]

REACTIONS (9)
  - ANGIONEUROTIC OEDEMA [None]
  - BLOOD ALKALINE PHOSPHATASE INCREASED [None]
  - BLOOD LACTATE DEHYDROGENASE INCREASED [None]
  - DYSPHAGIA [None]
  - EATING DISORDER [None]
  - HYPERSENSITIVITY [None]
  - LARYNGOPHARYNGITIS [None]
  - PHARYNGOLARYNGEAL PAIN [None]
  - RED BLOOD CELL COUNT INCREASED [None]
